FAERS Safety Report 5935746-7 (Version None)
Quarter: 2008Q4

REPORT INFORMATION
  Report Type: 
  Country: None (occurrence: None)
  Receive Date: 20081029
  Receipt Date: 20081029
  Transmission Date: 20090506
  Serious: No
  Sender: FDA-Public Use
  Company Number: None

PATIENT
  Age: 50 Year
  Sex: Male
  Weight: 80.29 kg

DRUGS (1)
  1. HYDROXYZINE [Suspect]
     Indication: ANXIETY
     Dosage: 25 MG PRN PO
     Route: 048
     Dates: start: 20080228, end: 20081002

REACTIONS (1)
  - ANXIETY [None]
